FAERS Safety Report 21753455 (Version 1)
Quarter: 2022Q4

REPORT INFORMATION
  Report Type: Spontaneous
  Country: US (occurrence: None)
  Receive Date: 20221219
  Receipt Date: 20221219
  Transmission Date: 20230113
  Serious: Yes (Hospitalization)
  Sender: FDA-Public Use
  Company Number: None

PATIENT
  Age: 52 Year
  Sex: Male
  Weight: 90 kg

DRUGS (2)
  1. THYMOGLOBULIN [Suspect]
     Active Substance: LAPINE T-LYMPHOCYTE IMMUNE GLOBULIN
     Indication: Prophylaxis against transplant rejection
     Dosage: OTHER FREQUENCY : ONCE;?
     Route: 041
     Dates: start: 20221218, end: 20221218
  2. THYMOGLOBULIN [Concomitant]
     Active Substance: LAPINE T-LYMPHOCYTE IMMUNE GLOBULIN
     Dates: start: 20221218, end: 20221218

REACTIONS (5)
  - Tachycardia [None]
  - Hypotension [None]
  - Pyrexia [None]
  - Lactic acidosis [None]
  - Infusion related reaction [None]

NARRATIVE: CASE EVENT DATE: 20221218
